FAERS Safety Report 11745333 (Version 1)
Quarter: 2015Q4

REPORT INFORMATION
  Report Type: Spontaneous
  Country: US (occurrence: US)
  Receive Date: 20151117
  Receipt Date: 20151117
  Transmission Date: 20160304
  Serious: No
  Sender: FDA-Public Use
  Company Number: US-ASTRAZENECA-2015SF06439

PATIENT
  Age: 32 Year
  Sex: Female
  Weight: 80.3 kg

DRUGS (2)
  1. CRESTOR [Suspect]
     Active Substance: ROSUVASTATIN CALCIUM
     Route: 048
  2. LOMITAPIDE [Concomitant]
     Active Substance: LOMITAPIDE MESYLATE
     Indication: TYPE II HYPERLIPIDAEMIA
     Dates: start: 20150518

REACTIONS (4)
  - Headache [Unknown]
  - Myalgia [Recovered/Resolved]
  - Stress [Unknown]
  - Weight decreased [Unknown]

NARRATIVE: CASE EVENT DATE: 20150519
